FAERS Safety Report 17949455 (Version 1)
Quarter: 2020Q2

REPORT INFORMATION
  Report Type: Spontaneous
  Country: GB (occurrence: GB)
  Receive Date: 20200626
  Receipt Date: 20200626
  Transmission Date: 20200714
  Serious: Yes (Other)
  Sender: FDA-Public Use
  Company Number: GB-ACCORD-187223

PATIENT
  Age: 27 Year
  Sex: Male

DRUGS (3)
  1. LEVETIRACETAM ACCORD [Suspect]
     Active Substance: LEVETIRACETAM
     Indication: EPILEPSY
     Route: 048
     Dates: start: 20200525, end: 20200601
  2. CLOBAZAM. [Concomitant]
     Active Substance: CLOBAZAM
  3. PHENYTOIN. [Concomitant]
     Active Substance: PHENYTOIN

REACTIONS (2)
  - Treatment failure [Unknown]
  - Seizure [Unknown]

NARRATIVE: CASE EVENT DATE: 20200601
